FAERS Safety Report 5064507-9 (Version None)
Quarter: 2006Q3

REPORT INFORMATION
  Report Type: 
  Country: None (occurrence: None)
  Receive Date: 20060728
  Receipt Date: 20060525
  Transmission Date: 20061208
  Serious: Yes (Life-Threatening, Hospitalization, Other)
  Sender: FDA-Public Use
  Company Number: PHEH2006US06920

PATIENT
  Age: 73 Year
  Sex: Female
  Weight: 91.156 kg

DRUGS (5)
  1. PNEUMOCOCCAL VACCINE [Concomitant]
     Indication: IMMUNISATION
     Dosage: UNK, ONCE/SINGLE
     Dates: start: 20051001, end: 20051001
  2. ALTACE [Concomitant]
     Dates: start: 20060501
  3. GLEEVEC [Suspect]
     Indication: CHRONIC MYELOID LEUKAEMIA
     Dosage: UNK, NO TREATMENT
     Dates: start: 20060101, end: 20060101
  4. GLEEVEC [Suspect]
     Dosage: 400 MG, QD
     Route: 048
     Dates: start: 20060101, end: 20060505
  5. GLEEVEC [Suspect]
     Dosage: 400 MG, QD
     Route: 048
     Dates: start: 20051101, end: 20060101

REACTIONS (23)
  - ALANINE AMINOTRANSFERASE INCREASED [None]
  - ANAEMIA [None]
  - ASPARTATE AMINOTRANSFERASE INCREASED [None]
  - ASTHENIA [None]
  - ATRIAL FIBRILLATION [None]
  - AZOTAEMIA [None]
  - BLOOD CREATININE INCREASED [None]
  - BLOOD LACTATE DEHYDROGENASE INCREASED [None]
  - CHILLS [None]
  - CLOSTRIDIUM DIFFICILE COLITIS [None]
  - DIALYSIS [None]
  - DIARRHOEA INFECTIOUS [None]
  - GENERAL PHYSICAL HEALTH DETERIORATION [None]
  - LIVER FUNCTION TEST ABNORMAL [None]
  - PERONEAL NERVE PALSY [None]
  - PNEUMONIA [None]
  - PYREXIA [None]
  - RASH [None]
  - RASH GENERALISED [None]
  - RENAL FAILURE ACUTE [None]
  - SEPTIC SHOCK [None]
  - THERAPY NON-RESPONDER [None]
  - THROMBOCYTOPENIA [None]
